FAERS Safety Report 15716117 (Version 2)
Quarter: 2018Q4

REPORT INFORMATION
  Report Type: Report from Study
  Country: IT (occurrence: IT)
  Receive Date: 20181213
  Receipt Date: 20181215
  Transmission Date: 20190205
  Serious: Yes (Hospitalization)
  Sender: FDA-Public Use
  Company Number: IT-TEVA-2018-IT-985172

PATIENT
  Age: 76 Year
  Sex: Male

DRUGS (2)
  1. BISOPROLOL FUMARATE. [Suspect]
     Active Substance: BISOPROLOL FUMARATE
     Indication: PRODUCT ADMINISTRATION ERROR
     Route: 048
     Dates: start: 20181108, end: 20181108
  2. LEPONEX 100 MG COMPRESSE [Suspect]
     Active Substance: CLOZAPINE
     Indication: PRODUCT ADMINISTRATION ERROR
     Route: 048
     Dates: start: 20181108, end: 20181108

REACTIONS (4)
  - Medication error [Recovering/Resolving]
  - Bradycardia [Recovering/Resolving]
  - Sopor [Recovering/Resolving]
  - Depressed level of consciousness [Recovering/Resolving]

NARRATIVE: CASE EVENT DATE: 20181108
